FAERS Safety Report 9718323 (Version 1)
Quarter: 2013Q4

REPORT INFORMATION
  Report Type: Spontaneous
  Country: US (occurrence: US)
  Receive Date: 20131127
  Receipt Date: 20131127
  Transmission Date: 20140711
  Serious: Yes (Other)
  Sender: FDA-Public Use
  Company Number: US-GILEAD-2013-0088404

PATIENT
  Age: 38 Year
  Sex: Female

DRUGS (7)
  1. AMBISOME [Suspect]
     Indication: LYMPHADENITIS FUNGAL
     Dosage: UNK
  2. ATRIPLA [Suspect]
     Indication: HIV INFECTION
  3. FLUCYTOSINE [Concomitant]
     Indication: LYMPHADENITIS FUNGAL
  4. FLUCONAZOLE [Concomitant]
     Indication: LYMPHADENITIS FUNGAL
  5. AZITHROMYCIN [Concomitant]
  6. PREDNISONE [Concomitant]
  7. VORICONAZOLE [Concomitant]

REACTIONS (2)
  - Renal failure acute [Unknown]
  - Gastrointestinal disorder [Unknown]
